FAERS Safety Report 24540343 (Version 1)
Quarter: 2024Q4

REPORT INFORMATION
  Report Type: Spontaneous
  Country: US (occurrence: None)
  Receive Date: 20241023
  Receipt Date: 20241023
  Transmission Date: 20250115
  Serious: Yes (Life-Threatening, Hospitalization, Disabling)
  Sender: Public
  Company Number: None

PATIENT
  Age: 31 Year
  Sex: Female
  Weight: 99 kg

DRUGS (12)
  1. OCREVUS [Suspect]
     Active Substance: OCRELIZUMAB
     Indication: Relapsing-remitting multiple sclerosis
     Dosage: OTHER FREQUENCY : INFUSION EVERY 6 M;?
     Dates: start: 20210722, end: 20220311
  2. TECFIDERA [Concomitant]
     Active Substance: DIMETHYL FUMARATE
  3. PREGABALIN [Concomitant]
     Active Substance: PREGABALIN
  4. ELIQUIS [Concomitant]
     Active Substance: APIXABAN
  5. STRATTERA [Concomitant]
     Active Substance: ATOMOXETINE HYDROCHLORIDE
  6. PRISTIQ [Concomitant]
  7. MONTELUKAST [Concomitant]
     Active Substance: MONTELUKAST
  8. LEVOCETIRIZINE [Concomitant]
     Active Substance: LEVOCETIRIZINE
  9. WIXELA INHUB [Concomitant]
     Active Substance: FLUTICASONE PROPIONATE\SALMETEROL XINAFOATE
  10. Albuterol [Concomitant]
  11. VITAMIN D [Concomitant]
     Active Substance: VITAMIN D NOS
  12. IRON [Concomitant]
     Active Substance: IRON

REACTIONS (10)
  - Neutropenia [None]
  - Malaise [None]
  - Viral infection [None]
  - Respiratory failure [None]
  - Pneumonia streptococcal [None]
  - Pyrexia [None]
  - Pulmonary embolism [None]
  - Sepsis [None]
  - Acute respiratory distress syndrome [None]
  - Restrictive pulmonary disease [None]

NARRATIVE: CASE EVENT DATE: 20220727
